FAERS Safety Report 9797523 (Version 2)
Quarter: 2014Q1

REPORT INFORMATION
  Report Type: Report from Study
  Country: CN (occurrence: CN)
  Receive Date: 20140106
  Receipt Date: 20140106
  Transmission Date: 20141002
  Serious: Yes (Hospitalization)
  Sender: FDA-Public Use
  Company Number: PHHO2011CN03522

PATIENT
  Age: 66 Year
  Sex: Male
  Weight: 65 kg

DRUGS (12)
  1. BLINDED ALISKIREN [Suspect]
     Indication: CARDIAC FAILURE
     Dosage: CODE NOT BROKEN
     Route: 048
     Dates: start: 20110413, end: 20131202
  2. BLINDED ENALAPRIL [Suspect]
     Indication: CARDIAC FAILURE
     Dosage: CODE NOT BROKEN
     Route: 048
     Dates: start: 20110413, end: 20131202
  3. BLINDED NO TREATMENT RECEIVED [Suspect]
     Indication: CARDIAC FAILURE
     Dosage: CODE NOT BROKEN
     Route: 048
     Dates: start: 20110413, end: 20131202
  4. BISOPROLOL [Concomitant]
     Indication: CARDIAC FAILURE CHRONIC
     Dosage: 2.5 MG, QD
     Route: 048
     Dates: start: 201205, end: 20131130
  5. ASPIRIN [Concomitant]
     Indication: CARDIAC FAILURE CHRONIC
     Dosage: 100 MG, QD
     Route: 048
  6. ASPIRIN [Concomitant]
     Indication: CORONARY ARTERY DISEASE
  7. LACEROL [Concomitant]
  8. LIPITOR [Concomitant]
     Indication: CARDIAC FAILURE CHRONIC
     Dosage: 20 MG, QD
     Route: 048
     Dates: start: 20111111
  9. GEN-GLICLAZIDE [Concomitant]
     Indication: TYPE 2 DIABETES MELLITUS
     Dosage: 80 MG, BID
     Route: 048
     Dates: start: 2010
  10. NARCARICIN [Concomitant]
     Indication: ARTHROPATHY
     Dosage: 50 MG, QD
     Route: 048
     Dates: start: 20111031
  11. METFORMIN [Concomitant]
     Indication: TYPE 2 DIABETES MELLITUS
     Dosage: 85 MG, QD
     Route: 048
     Dates: start: 201202
  12. GLICLAZIDE [Concomitant]
     Indication: TYPE 2 DIABETES MELLITUS
     Dosage: 80 MG, QD
     Route: 048
     Dates: start: 201201

REACTIONS (5)
  - Angina unstable [Recovered/Resolved]
  - Cardiac failure [Recovered/Resolved]
  - Disease progression [Recovered/Resolved]
  - Palpitations [Recovered/Resolved]
  - Sense of oppression [Recovered/Resolved]
